FAERS Safety Report 8290726-4 (Version None)
Quarter: 2012Q2

REPORT INFORMATION
  Report Type: 
  Country: None (occurrence: None)
  Receive Date: 20120417
  Receipt Date: 20110729
  Transmission Date: 20120825
  Serious: No
  Sender: FDA-Public Use
  Company Number: US-ASTRAZENECA-2011SE45735

PATIENT
  Sex: Female

DRUGS (11)
  1. PREMARIN [Concomitant]
  2. NEXIUM [Suspect]
     Route: 048
  3. TRAZODONE HCL [Concomitant]
  4. CLONAZEPAM [Concomitant]
  5. XANAX [Concomitant]
  6. PREDNASONE [Concomitant]
  7. AMYTRIPTALINE [Concomitant]
  8. TRAMADOL HCL [Concomitant]
  9. OXYCODONE HCL [Concomitant]
  10. SEROQUEL [Suspect]
     Route: 048
  11. FLOVENT HFA [Concomitant]

REACTIONS (3)
  - MALAISE [None]
  - GASTROOESOPHAGEAL REFLUX DISEASE [None]
  - DRUG DOSE OMISSION [None]
